FAERS Safety Report 14430515 (Version 1)
Quarter: 2018Q1

REPORT INFORMATION
  Report Type: Spontaneous
  Country: US (occurrence: US)
  Receive Date: 20180123
  Receipt Date: 20180123
  Transmission Date: 20180509
  Serious: Yes (Other)
  Sender: FDA-Public Use
  Company Number: None

PATIENT
  Age: 21 Year
  Sex: Male
  Weight: 67.5 kg

DRUGS (2)
  1. VYVNASE [Concomitant]
  2. GUANFACINE ER [Suspect]
     Active Substance: GUANFACINE
     Indication: ATTENTION DEFICIT/HYPERACTIVITY DISORDER
     Route: 048
     Dates: start: 20180114, end: 20180122

REACTIONS (2)
  - Product substitution issue [None]
  - Excessive eye blinking [None]

NARRATIVE: CASE EVENT DATE: 20180121
